FAERS Safety Report 4703235-3 (Version None)
Quarter: 2005Q2

REPORT INFORMATION
  Report Type: 
  Country: None (occurrence: None)
  Receive Date: 20050628
  Receipt Date: 20050610
  Transmission Date: 20051028
  Serious: Yes (Life-Threatening, Hospitalization)
  Sender: FDA-Public Use
  Company Number: DSA_26615_2005

PATIENT
  Age: 65 Year
  Sex: Male
  Weight: 49 kg

DRUGS (25)
  1. ENALAPRIL MALEATE [Suspect]
     Indication: HYPERTENSION
     Dosage: 5 MG QD PO
     Route: 048
     Dates: start: 20000108, end: 20000612
  2. ENALAPRIL MALEATE [Suspect]
     Indication: MYOCARDIAL INFARCTION
     Dosage: 5 MG QD PO
     Route: 048
     Dates: start: 20000108, end: 20000612
  3. ENALAPRIL MALEATE [Suspect]
     Indication: MYOCARDIAL ISCHAEMIA
     Dosage: 5 MG QD PO
     Route: 048
     Dates: start: 20000108, end: 20000612
  4. ENALAPRIL MALEATE [Suspect]
     Indication: HYPERTENSION
     Dosage: 2.5 MG Q DAY PO
     Route: 048
     Dates: start: 20001109, end: 20001115
  5. ENALAPRIL MALEATE [Suspect]
     Indication: MYOCARDIAL INFARCTION
     Dosage: 2.5 MG Q DAY PO
     Route: 048
     Dates: start: 20001109, end: 20001115
  6. ENALAPRIL MALEATE [Suspect]
     Indication: MYOCARDIAL ISCHAEMIA
     Dosage: 2.5 MG Q DAY PO
     Route: 048
     Dates: start: 20001109, end: 20001115
  7. ENALAPRIL MALEATE [Suspect]
     Indication: HYPERTENSION
     Dosage: 2.5 MG Q DAY PO
     Route: 048
     Dates: start: 20001116, end: 20001122
  8. ENALAPRIL MALEATE [Suspect]
     Indication: MYOCARDIAL INFARCTION
     Dosage: 2.5 MG Q DAY PO
     Route: 048
     Dates: start: 20001116, end: 20001122
  9. ENALAPRIL MALEATE [Suspect]
     Indication: MYOCARDIAL ISCHAEMIA
     Dosage: 2.5 MG Q DAY PO
     Route: 048
     Dates: start: 20001116, end: 20001122
  10. ENALAPRIL MALEATE [Suspect]
     Indication: HYPERTENSION
     Dosage: 5 MG Q DAY PO
     Route: 048
     Dates: start: 20001123, end: 20010129
  11. ENALAPRIL MALEATE [Suspect]
     Indication: MYOCARDIAL INFARCTION
     Dosage: 5 MG Q DAY PO
     Route: 048
     Dates: start: 20001123, end: 20010129
  12. ENALAPRIL MALEATE [Suspect]
     Indication: MYOCARDIAL ISCHAEMIA
     Dosage: 5 MG Q DAY PO
     Route: 048
     Dates: start: 20001123, end: 20010129
  13. ALFAROL [Concomitant]
  14. ARTIST [Concomitant]
  15. BUFFERIN [Concomitant]
  16. EPOGIN [Concomitant]
  17. FUTHAN [Concomitant]
  18. ITOROL [Concomitant]
  19. LASIX [Concomitant]
  20. METLIGINE [Concomitant]
  21. NORVASC [Concomitant]
  22. PANALDINE [Concomitant]
  23. GASTER [Concomitant]
  24. INSULIN [Concomitant]
  25. NOR-ADRENALIN [Concomitant]

REACTIONS (11)
  - EOSINOPHIL COUNT INCREASED [None]
  - HAEMATOCRIT DECREASED [None]
  - HAEMOGLOBIN DECREASED [None]
  - LYMPHOCYTE PERCENTAGE DECREASED [None]
  - MONOCYTE PERCENTAGE DECREASED [None]
  - NEUTROPHIL PERCENTAGE DECREASED [None]
  - PERITONEAL DIALYSIS [None]
  - PROCEDURAL COMPLICATION [None]
  - PRURITUS GENERALISED [None]
  - SHOCK [None]
  - WHITE BLOOD CELL COUNT INCREASED [None]
